FAERS Safety Report 15415423 (Version 1)
Quarter: 2018Q3

REPORT INFORMATION
  Report Type: Spontaneous
  Country: DE (occurrence: DE)
  Receive Date: 20180921
  Receipt Date: 20180921
  Transmission Date: 20181010
  Serious: Yes (Other)
  Sender: FDA-Public Use
  Company Number: DE-GILEAD-2018-0352856

PATIENT
  Age: 50 Year
  Sex: Male
  Weight: 84 kg

DRUGS (5)
  1. ODEFSEY [Suspect]
     Active Substance: EMTRICITABINE\RILPIVIRINE HYDROCHLORIDE\TENOFOVIR ALAFENAMIDE FUMARATE
     Indication: HIV INFECTION
     Dosage: 1 DF, UNK
     Route: 065
  2. GLECAPREVIR [Suspect]
     Active Substance: GLECAPREVIR
     Indication: CHRONIC HEPATITIS C
     Dosage: 1 DF, QD
     Route: 048
     Dates: start: 20180614, end: 20180808
  3. PIBRENTASVIR [Suspect]
     Active Substance: PIBRENTASVIR
     Indication: CHRONIC HEPATITIS C
     Dosage: 1 DF, QD
     Route: 048
     Dates: start: 20180614, end: 20180808
  4. TESTOGEL [Concomitant]
     Active Substance: TESTOSTERONE
     Dosage: UNK
  5. SKAT DUOMIX [Concomitant]

REACTIONS (1)
  - Fatigue [Unknown]

NARRATIVE: CASE EVENT DATE: 20180614
